FAERS Safety Report 11613260 (Version 3)
Quarter: 2015Q4

REPORT INFORMATION
  Report Type: Spontaneous
  Country: US (occurrence: US)
  Receive Date: 20151008
  Receipt Date: 20151229
  Transmission Date: 20160304
  Serious: Yes (Hospitalization)
  Sender: FDA-Public Use
  Company Number: US-JNJFOC-20150903662

PATIENT
  Age: 26 Year
  Sex: Male

DRUGS (1)
  1. XARELTO [Suspect]
     Active Substance: RIVAROXABAN
     Indication: THROMBOSIS PROPHYLAXIS
     Route: 048
     Dates: start: 20130831, end: 20130904

REACTIONS (3)
  - Haemothorax [Recovered/Resolved]
  - Retroperitoneal haemorrhage [Recovering/Resolving]
  - Splenic haemorrhage [Recovering/Resolving]

NARRATIVE: CASE EVENT DATE: 20130906
